FAERS Safety Report 9677125 (Version 3)
Quarter: 2014Q2

REPORT INFORMATION
  Report Type: Spontaneous
  Country: FI (occurrence: FI)
  Receive Date: 20131108
  Receipt Date: 20140522
  Transmission Date: 20141212
  Serious: Yes (Hospitalization, Other)
  Sender: FDA-Public Use
  Company Number: FI-ROCHE-1297881

PATIENT
  Age: 4 Year
  Sex: Female
  Weight: 32 kg

DRUGS (17)
  1. ROACTEMRA [Suspect]
     Indication: JUVENILE IDIOPATHIC ARTHRITIS
     Route: 065
  2. ROACTEMRA [Suspect]
     Dosage: FOUR MONTHS FROM THE TREATMENT, DOSE REDUCED
     Route: 065
  3. ROACTEMRA [Suspect]
     Dosage: FIRST YEAR OF  THE TREATMENT
     Route: 065
  4. ROACTEMRA [Suspect]
     Dosage: SECOND YEAR FROM THE START OF THE TREATMENT
     Route: 065
  5. ROACTEMRA [Suspect]
     Dosage: THIRD YEAR FROM THE START OF THE  TREATMENT
     Route: 065
  6. ROACTEMRA [Suspect]
     Dosage: TOTAL DOSE 300 MG
     Route: 065
     Dates: start: 20091104
  7. ROACTEMRA [Suspect]
     Route: 065
     Dates: start: 20131211
  8. ROACTEMRA [Suspect]
     Route: 065
     Dates: start: 20140117
  9. ROACTEMRA [Suspect]
     Route: 065
     Dates: start: 20140220
  10. ROACTEMRA [Suspect]
     Route: 065
     Dates: start: 20140411
  11. PREDNISOLON [Concomitant]
     Indication: JUVENILE IDIOPATHIC ARTHRITIS
     Route: 065
  12. PREDNISOLON [Concomitant]
     Dosage: 2,5MG EVERY OTHER DAY
     Route: 065
     Dates: start: 201010
  13. PREDNISOLON [Concomitant]
     Dosage: 2,5MG EVERY OTHER DAY
     Route: 065
     Dates: start: 201310
  14. PREDNISOLON [Concomitant]
     Route: 065
     Dates: start: 201404
  15. METHOTREXAT [Concomitant]
     Indication: JUVENILE IDIOPATHIC ARTHRITIS
     Route: 048
     Dates: start: 201010
  16. METHOTREXAT [Concomitant]
     Route: 048
     Dates: start: 20131016
  17. METHOTREXAT [Concomitant]
     Route: 048
     Dates: start: 201404

REACTIONS (7)
  - Neutropenia [Unknown]
  - Gastroenteritis [Recovered/Resolved]
  - Pyelonephritis [Recovered/Resolved]
  - Juvenile idiopathic arthritis [Unknown]
  - Pneumonia [Recovered/Resolved]
  - Nausea [Unknown]
  - Vomiting [Unknown]
